FAERS Safety Report 10052354 (Version 1)
Quarter: 2014Q2

REPORT INFORMATION
  Report Type: Spontaneous
  Country: FR (occurrence: FR)
  Receive Date: 20140402
  Receipt Date: 20140402
  Transmission Date: 20141212
  Serious: Yes (Hospitalization)
  Sender: FDA-Public Use
  Company Number: FR-ASTRAZENECA-2014SE21416

PATIENT
  Age: 23815 Day
  Sex: Male

DRUGS (6)
  1. INEXIUM [Suspect]
     Indication: PERFORATED ULCER
     Route: 042
     Dates: start: 20140228, end: 20140306
  2. NEFOPAM MYLAN [Suspect]
     Indication: ANALGESIC THERAPY
     Route: 042
     Dates: start: 20140228, end: 20140303
  3. FLUCONAZOLE [Concomitant]
     Route: 042
     Dates: start: 20140228, end: 20140302
  4. CEFTRIAXONE [Concomitant]
     Route: 042
     Dates: start: 20140228
  5. METRONIDAZOLE [Concomitant]
     Route: 042
     Dates: start: 20140228
  6. PARACETAMOL [Concomitant]
     Route: 042
     Dates: start: 20140228

REACTIONS (3)
  - Anxiety [Recovered/Resolved]
  - Hallucination, visual [Recovered/Resolved]
  - Agitation [Recovered/Resolved]
